FAERS Safety Report 7090564-4 (Version None)
Quarter: 2010Q4

REPORT INFORMATION
  Report Type: 
  Country: None (occurrence: None)
  Receive Date: 20101012
  Receipt Date: 20100412
  Transmission Date: 20110411
  Serious: Yes (Other)
  Sender: FDA-Public Use
  Company Number: 1000011971

PATIENT
  Age: 50 Year
  Sex: Female
  Weight: 136.0791 kg

DRUGS (2)
  1. LEXAPRO [Suspect]
     Indication: DEPRESSION
     Dosage: 10 MG (10 MG,1 IN 1 D),ORAL
     Route: 048
     Dates: start: 20060801, end: 20090501
  2. SYNTHROID (0.1 MILLIGRAM) [Concomitant]

REACTIONS (7)
  - ANXIETY [None]
  - INCREASED APPETITE [None]
  - INSOMNIA [None]
  - PANIC ATTACK [None]
  - SWOLLEN TONGUE [None]
  - VISUAL IMPAIRMENT [None]
  - WEIGHT INCREASED [None]
